FAERS Safety Report 10570833 (Version 6)
Quarter: 2017Q4

REPORT INFORMATION
  Report Type: Spontaneous
  Country: US (occurrence: US)
  Receive Date: 20141107
  Receipt Date: 20171121
  Transmission Date: 20180320
  Serious: Yes (Hospitalization, Disabling, Other)
  Sender: FDA-Public Use
  Company Number: US-009507513-1411USA000588

PATIENT
  Sex: Female

DRUGS (6)
  1. ALENDRONATE SODIUM. [Suspect]
     Active Substance: ALENDRONATE SODIUM
     Indication: PRODUCT USED FOR UNKNOWN INDICATION
     Dosage: 70 MG, UNK
     Route: 048
     Dates: start: 200809, end: 20110309
  2. ALENDRONATE SODIUM. [Suspect]
     Active Substance: ALENDRONATE SODIUM
     Indication: OSTEOPOROSIS
     Dosage: 70 MG, UNK
     Route: 048
     Dates: start: 200803, end: 2008
  3. FOSAMAX [Suspect]
     Active Substance: ALENDRONATE SODIUM
     Indication: OSTEOPOROSIS
     Dosage: 10 MG, QD
     Route: 048
     Dates: start: 2004, end: 200605
  4. BONIVA [Suspect]
     Active Substance: IBANDRONATE SODIUM
     Indication: OSTEOPOROSIS
     Dosage: UNK, QM
     Route: 048
     Dates: start: 200605, end: 200702
  5. FOSAMAX PLUS D [Suspect]
     Active Substance: ALENDRONATE SODIUM\CHOLECALCIFEROL
     Indication: OSTEOPOROSIS
     Dosage: 70MG/2800 IU
     Route: 048
     Dates: start: 200702, end: 201003
  6. FOSAMAX [Suspect]
     Active Substance: ALENDRONATE SODIUM
     Dosage: UNK
     Route: 048
     Dates: start: 200512, end: 201104

REACTIONS (29)
  - Malnutrition [Unknown]
  - Blood chromium increased [Unknown]
  - Pelvic fracture [Unknown]
  - Vitamin D deficiency [Unknown]
  - Pain [Unknown]
  - Muscle spasms [Unknown]
  - Drug hypersensitivity [Unknown]
  - Arthropathy [Unknown]
  - Nephrolithiasis [Unknown]
  - Nephrolithiasis [Unknown]
  - Alopecia [Unknown]
  - Fatigue [Unknown]
  - Emotional distress [Unknown]
  - Femur fracture [Recovered/Resolved]
  - Back injury [Unknown]
  - Gastric bypass [Unknown]
  - Joint arthroplasty [Unknown]
  - Hip arthroplasty [Recovering/Resolving]
  - Hysterectomy [Unknown]
  - Back pain [Unknown]
  - Osteoarthritis [Unknown]
  - Joint injury [Unknown]
  - Hypothyroidism [Unknown]
  - Road traffic accident [Unknown]
  - Weight decreased [Unknown]
  - Goitre [Unknown]
  - Osteoarthritis [Unknown]
  - Osteopenia [Unknown]
  - Upper limb fracture [Unknown]

NARRATIVE: CASE EVENT DATE: 2004
